FAERS Safety Report 6395034-4 (Version None)
Quarter: 2009Q4

REPORT INFORMATION
  Report Type: 
  Country: None (occurrence: None)
  Receive Date: 20091009
  Receipt Date: 20091005
  Transmission Date: 20100525
  Serious: Yes (Death)
  Sender: FDA-Public Use
  Company Number: JP-ASTRAZENECA-2009SE14108

PATIENT
  Age: 29454 Day
  Sex: Male
  Weight: 63 kg

DRUGS (6)
  1. IRESSA [Suspect]
     Indication: LUNG ADENOCARCINOMA
     Route: 048
     Dates: start: 20090708, end: 20090730
  2. VERAPAMIL HCL [Concomitant]
     Indication: HYPERTENSION
     Route: 048
     Dates: start: 20090501, end: 20090908
  3. STOGAR [Concomitant]
     Indication: GASTRITIS
     Route: 048
     Dates: start: 20090501, end: 20090908
  4. SENNAL [Concomitant]
     Indication: CONSTIPATION
     Route: 048
     Dates: start: 20090501, end: 20090908
  5. MYSLEE [Concomitant]
     Indication: INSOMNIA
     Route: 048
     Dates: start: 20090501, end: 20090908
  6. NAIXAN [Concomitant]
     Indication: TUMOUR ASSOCIATED FEVER
     Route: 048
     Dates: start: 20090520, end: 20090908

REACTIONS (1)
  - LUNG DISORDER [None]
